FAERS Safety Report 21427797 (Version 1)
Quarter: 2022Q4

REPORT INFORMATION
  Report Type: Spontaneous
  Country: US (occurrence: US)
  Receive Date: 20221008
  Receipt Date: 20221008
  Transmission Date: 20230113
  Serious: Yes (Other)
  Sender: FDA-Public Use
  Company Number: US-PURDUE-USA-2020-0205926

PATIENT
  Sex: Male

DRUGS (2)
  1. HYDROCODONE BITARTRATE AND ACETAMINOPHEN [Suspect]
     Active Substance: ACETAMINOPHEN\HYDROCODONE BITARTRATE
     Indication: Lymphoma
     Dosage: UNKNOWN
     Route: 048
     Dates: start: 201103
  2. TRAMADOL [Suspect]
     Active Substance: TRAMADOL
     Indication: Lymphoma
     Dosage: UNKNOWN
     Route: 048
     Dates: start: 201103

REACTIONS (2)
  - Overdose [Unknown]
  - Drug dependence [Recovered/Resolved]
